FAERS Safety Report 9811695 (Version 2)
Quarter: 2014Q1

REPORT INFORMATION
  Report Type: Spontaneous
  Country: US (occurrence: US)
  Receive Date: 20140110
  Receipt Date: 20140110
  Transmission Date: 20141002
  Serious: Yes (Hospitalization)
  Sender: FDA-Public Use
  Company Number: US-SANOFI-AVENTIS-2013SA052656

PATIENT
  Age: 80 Year
  Sex: Female
  Weight: 54 kg

DRUGS (7)
  1. PLAVIX [Suspect]
     Indication: PRODUCT USED FOR UNKNOWN INDICATION
     Route: 065
     Dates: start: 2012, end: 2012
  2. IBUPROFEN [Suspect]
     Indication: TEMPOROMANDIBULAR JOINT SYNDROME
     Route: 065
     Dates: start: 201209
  3. IBUPROFEN [Suspect]
     Indication: INFLAMMATION
     Route: 065
     Dates: start: 201209
  4. LIPITOR [Suspect]
     Indication: HYPERTENSION
     Route: 065
  5. METFORMIN [Concomitant]
     Indication: DIABETES MELLITUS
     Route: 065
  6. TRIAMTERENE [Concomitant]
     Indication: CARDIAC DISORDER
     Route: 065
  7. HYDROCHLOROTHIAZIDE [Concomitant]
     Indication: CARDIAC DISORDER

REACTIONS (8)
  - Pancreatitis acute [Unknown]
  - Vomiting [Unknown]
  - Nausea [Unknown]
  - Gastrointestinal haemorrhage [Recovered/Resolved]
  - Tremor [Unknown]
  - Dysgraphia [Unknown]
  - Weight abnormal [Unknown]
  - Drug ineffective [Unknown]
